FAERS Safety Report 14345632 (Version 2)
Quarter: 2018Q1

REPORT INFORMATION
  Report Type: Report from Study
  Country: US (occurrence: US)
  Receive Date: 20180103
  Receipt Date: 20180117
  Transmission Date: 20180509
  Serious: Yes (Other)
  Sender: FDA-Public Use
  Company Number: US-GILEAD-2017-0313089

PATIENT
  Age: 70 Year
  Sex: Female
  Weight: 106.85 kg

DRUGS (9)
  1. COREG [Concomitant]
     Active Substance: CARVEDILOL
  2. LASIX [Concomitant]
     Active Substance: FUROSEMIDE
  3. AMBRISENTAN [Suspect]
     Active Substance: AMBRISENTAN
     Indication: PULMONARY ARTERIAL HYPERTENSION
     Dosage: 5 MG, QD
     Route: 065
     Dates: start: 20161214
  4. FLUOXETINE [Concomitant]
     Active Substance: FLUOXETINE HYDROCHLORIDE
  5. ADCIRCA [Concomitant]
     Active Substance: TADALAFIL
  6. FENOFIBRATE. [Concomitant]
     Active Substance: FENOFIBRATE
  7. BUSPIRONE [Concomitant]
     Active Substance: BUSPIRONE HYDROCHLORIDE
  8. DIAZEPAM. [Concomitant]
     Active Substance: DIAZEPAM
  9. KLOR-CON [Concomitant]
     Active Substance: POTASSIUM CHLORIDE

REACTIONS (3)
  - Visual impairment [Not Recovered/Not Resolved]
  - Blood pressure increased [Not Recovered/Not Resolved]
  - Cataract [Unknown]

NARRATIVE: CASE EVENT DATE: 20170101
